FAERS Safety Report 9699353 (Version 1)
Quarter: 2020Q3

REPORT INFORMATION
  Report Type: Spontaneous
  Country: CH (occurrence: CH)
  Receive Date: 20131120
  Receipt Date: 20131120
  Transmission Date: 20201105
  Serious: Yes (Other)
  Sender: FDA-Public Use
  Company Number: CH-MYLANLABS-2013S1025355

PATIENT
  Age: 61 Year
  Sex: Female

DRUGS (5)
  1. HYDROXYCHLOROQUINE [Concomitant]
     Active Substance: HYDROXYCHLOROQUINE
     Indication: SYSTEMIC LUPUS ERYTHEMATOSUS
     Route: 065
  2. PREDNISONE. [Suspect]
     Active Substance: PREDNISONE
     Indication: DRUG-INDUCED LIVER INJURY
     Dosage: 40 MG/DAY
     Route: 065
  3. ASPIRIN. [Concomitant]
     Active Substance: ASPIRIN
     Indication: CARDIOVASCULAR EVENT PROPHYLAXIS
     Route: 065
  4. IBANDRONIC ACID. [Suspect]
     Active Substance: IBANDRONIC ACID
     Indication: OSTEOPOROSIS
     Dosage: MONTHLY
     Route: 042
     Dates: start: 201006
  5. ATORVASTATIN [Concomitant]
     Active Substance: ATORVASTATIN
     Indication: DYSLIPIDAEMIA
     Route: 065

REACTIONS (6)
  - Drug-induced liver injury [Recovered/Resolved]
  - Weight increased [Unknown]
  - Hypertension [Unknown]
  - Hirsutism [Unknown]
  - Generalised oedema [Unknown]
  - Affect lability [Unknown]
